FAERS Safety Report 5314906-2 (Version None)
Quarter: 2007Q2

REPORT INFORMATION
  Report Type: 
  Country: None (occurrence: None)
  Receive Date: 20070502
  Receipt Date: 20070424
  Transmission Date: 20071010
  Serious: Yes (Death, Hospitalization)
  Sender: FDA-Public Use
  Company Number: US-JNJFOC-20061106138

PATIENT
  Sex: Female
  Weight: 80.74 kg

DRUGS (1)
  1. ORTHO EVRA [Suspect]
     Indication: CONTRACEPTION
     Route: 062
     Dates: start: 20030701, end: 20030801

REACTIONS (14)
  - ACTIVATED PARTIAL THROMBOPLASTIN TIME PROLONGED [None]
  - CARDIAC ARREST [None]
  - DILATATION ATRIAL [None]
  - DILATATION VENTRICULAR [None]
  - ELECTROCARDIOGRAM T WAVE INVERSION [None]
  - HILAR LYMPHADENOPATHY [None]
  - HYPERTENSION [None]
  - MYOCARDIAL ISCHAEMIA [None]
  - PHARYNGOLARYNGEAL PAIN [None]
  - PULMONARY EMBOLISM [None]
  - RESPIRATORY FREMITUS [None]
  - RHINORRHOEA [None]
  - VENTRICULAR HYPOKINESIA [None]
  - VOMITING [None]
